FAERS Safety Report 8368079-2 (Version None)
Quarter: 2012Q2

REPORT INFORMATION
  Report Type: 
  Country: None (occurrence: None)
  Receive Date: 20120517
  Receipt Date: 20120511
  Transmission Date: 20120825
  Serious: Yes (Other)
  Sender: FDA-Public Use
  Company Number: IN-PFIZER INC-2010020919

PATIENT
  Age: 40 Year
  Sex: Female

DRUGS (2)
  1. CEFPODOXIME PROXETIL [Suspect]
     Indication: COUGH
  2. CEFPODOXIME PROXETIL [Suspect]
     Indication: PYREXIA
     Dosage: 200 MG, 2X/DAY

REACTIONS (2)
  - HYPERPROLACTINAEMIA [None]
  - GALACTORRHOEA [None]
